FAERS Safety Report 8764763 (Version 1)
Quarter: 2012Q4

REPORT INFORMATION
  Report Type: 
  Country: CN (occurrence: CN)
  Receive Date: 20120831
  Receipt Date: 20120831
  Transmission Date: 20130627
  Serious: Yes (Other)
  Sender: FDA-Public Use
  Company Number: CN-ROCHE-1106248

PATIENT
  Age: 49 Year
  Sex: Female
  Weight: 46 kg

DRUGS (2)
  1. CELLCEPT [Suspect]
     Indication: GLOMERULONEPHRITIS RAPIDLY PROGRESSIVE
     Route: 048
     Dates: start: 20081126, end: 20090125
  2. PREDNISOLONE ACETATE [Suspect]
     Indication: GLOMERULONEPHRITIS RAPIDLY PROGRESSIVE
     Route: 048
     Dates: start: 20081126, end: 20090123

REACTIONS (8)
  - Lung infection [Recovering/Resolving]
  - Sinusitis [Unknown]
  - Conjunctivitis [Unknown]
  - Acute respiratory distress syndrome [Unknown]
  - Respiratory failure [Unknown]
  - Herpes virus infection [Unknown]
  - Swelling face [Unknown]
  - Erythema [Unknown]
